FAERS Safety Report 14362480 (Version 10)
Quarter: 2018Q2

REPORT INFORMATION
  Report Type: Spontaneous
  Country: FR (occurrence: FR)
  Receive Date: 20180108
  Receipt Date: 20180424
  Transmission Date: 20180711
  Serious: Yes (Hospitalization, Other)
  Sender: FDA-Public Use
  Company Number: PHHY2017FR198035

PATIENT
  Age: 82 Year
  Sex: Female
  Weight: 64.99 kg

DRUGS (12)
  1. RABEPRAZOLE [Suspect]
     Active Substance: RABEPRAZOLE
     Indication: PRODUCT USED FOR UNKNOWN INDICATION
     Dosage: UNK
     Route: 048
     Dates: end: 20171210
  2. AZOPT [Suspect]
     Active Substance: BRINZOLAMIDE
     Indication: GLAUCOMA
     Dosage: 1 DF (1 UG/LITRE), QD
     Route: 047
     Dates: end: 20171210
  3. VOLTARENE EMULGEL [Suspect]
     Active Substance: DICLOFENAC DIETHYLAMINE
     Indication: PAIN
     Dosage: 2.5 G, QD
     Route: 003
     Dates: end: 20171210
  4. MONOPROST [Suspect]
     Active Substance: LATANOPROST
     Indication: GLAUCOMA
     Dosage: 1 DF (1 UG/LITRE), QD
     Route: 047
     Dates: end: 20171210
  5. HYALGAN [Suspect]
     Active Substance: HYALURONATE SODIUM
     Indication: OSTEOARTHRITIS
     Dosage: 2 ML, CYCLIC
     Route: 014
     Dates: end: 20171206
  6. LATANOPROST. [Suspect]
     Active Substance: LATANOPROST
     Indication: GLAUCOMA
     Dosage: 1 DF, QD
     Route: 047
     Dates: end: 20171210
  7. RHINOMAXIL [Suspect]
     Active Substance: BECLOMETHASONE DIPROPIONATE
     Indication: PRODUCT USED FOR UNKNOWN INDICATION
     Dosage: 4 DF, QD
     Route: 045
     Dates: end: 20171210
  8. RHINOMAXIL [Suspect]
     Active Substance: BECLOMETHASONE DIPROPIONATE
     Dosage: 2 DF (2 UG/LITRE), QD
     Route: 045
     Dates: end: 20171210
  9. BECLOMETHASONE [Suspect]
     Active Substance: BECLOMETHASONE
     Indication: PRODUCT USED FOR UNKNOWN INDICATION
     Dosage: 4 DF (4 UG/LITRE), QD
     Route: 045
     Dates: end: 20171210
  10. LAMALINE (ACETAMINOPHEN\BELLADONNA LEAF\CAFFEINE\OPIUM) [Suspect]
     Active Substance: ACETAMINOPHEN\BELLADONNA LEAF\CAFFEINE\OPIUM
     Indication: PAIN
     Dosage: 1 DF (1 UG/LITRE), PRN
     Route: 048
  11. DESLORATADINE. [Suspect]
     Active Substance: DESLORATADINE
     Indication: PRODUCT USED FOR UNKNOWN INDICATION
     Dosage: 5 MG, QD
     Route: 048
     Dates: end: 20171210
  12. ATROPA BELLADONNA EXTRACT [Suspect]
     Active Substance: ATROPA BELLADONNA\HOMEOPATHICS
     Indication: PAIN
     Dosage: 1 DF, PRN
     Route: 048

REACTIONS (1)
  - Pancreatitis acute [Recovering/Resolving]

NARRATIVE: CASE EVENT DATE: 20171209
